FAERS Safety Report 7416964-8 (Version None)
Quarter: 2011Q2

REPORT INFORMATION
  Report Type: 
  Country: None (occurrence: None)
  Receive Date: 20110415
  Receipt Date: 20110407
  Transmission Date: 20111010
  Serious: Yes (Other)
  Sender: FDA-Public Use
  Company Number: US-ASTELLAS-2011US001498

PATIENT
  Age: 38 Year
  Sex: Male

DRUGS (4)
  1. AMBISOME [Suspect]
     Indication: CUTANEOUS LEISHMANIASIS
     Dosage: 3 MG/KG, UID/QD
     Route: 041
  2. ACETAMINOPHEN [Concomitant]
     Indication: PRODUCT USED FOR UNKNOWN INDICATION
     Dosage: UNK
     Route: 065
  3. DIPHENHYDRAMINE [Concomitant]
     Indication: PRODUCT USED FOR UNKNOWN INDICATION
     Dosage: UNK
     Route: 065
  4. ANTIBIOTICS [Concomitant]
     Indication: ANTIBIOTIC THERAPY
     Dosage: UNK
     Route: 065

REACTIONS (2)
  - MEMORY IMPAIRMENT [None]
  - CONFUSIONAL STATE [None]
